FAERS Safety Report 25265660 (Version 1)
Quarter: 2025Q2

REPORT INFORMATION
  Report Type: Spontaneous
  Country: PL (occurrence: PL)
  Receive Date: 20250503
  Receipt Date: 20250503
  Transmission Date: 20250716
  Serious: Yes (Life-Threatening, Hospitalization, Other)
  Sender: CELLTRION
  Company Number: PL-SA-2021SA059745

PATIENT

DRUGS (40)
  1. RITUXIMAB [Suspect]
     Active Substance: RITUXIMAB
     Indication: Diffuse large B-cell lymphoma stage III
     Dates: start: 20170904, end: 20170905
  2. RITUXIMAB [Suspect]
     Active Substance: RITUXIMAB
     Dates: start: 20170925, end: 20170926
  3. RITUXIMAB [Suspect]
     Active Substance: RITUXIMAB
     Dates: start: 20171018, end: 20171019
  4. RITUXIMAB [Suspect]
     Active Substance: RITUXIMAB
     Dates: start: 20171108, end: 20171109
  5. RITUXIMAB [Suspect]
     Active Substance: RITUXIMAB
     Dates: start: 20171215, end: 20171216
  6. RITUXIMAB [Suspect]
     Active Substance: RITUXIMAB
     Dates: start: 20180123
  7. RITUXIMAB [Suspect]
     Active Substance: RITUXIMAB
     Dates: start: 20180301
  8. PREDNISONE [Suspect]
     Active Substance: PREDNISONE
     Indication: Diffuse large B-cell lymphoma stage III
     Dates: start: 20170904, end: 20170905
  9. PREDNISONE [Suspect]
     Active Substance: PREDNISONE
     Dates: start: 20170925, end: 20170926
  10. PREDNISONE [Suspect]
     Active Substance: PREDNISONE
     Dates: start: 20171018, end: 20171019
  11. PREDNISONE [Suspect]
     Active Substance: PREDNISONE
     Dates: start: 20171108, end: 20171109
  12. PREDNISONE [Suspect]
     Active Substance: PREDNISONE
     Dates: start: 20171215, end: 20171216
  13. PREDNISONE [Suspect]
     Active Substance: PREDNISONE
     Dates: start: 20180123
  14. PREDNISONE [Suspect]
     Active Substance: PREDNISONE
     Dates: start: 20180301
  15. CYCLOPHOSPHAMIDE [Suspect]
     Active Substance: CYCLOPHOSPHAMIDE
     Indication: Diffuse large B-cell lymphoma stage III
     Dates: start: 20170904, end: 20170905
  16. CYCLOPHOSPHAMIDE [Suspect]
     Active Substance: CYCLOPHOSPHAMIDE
     Dates: start: 20170925, end: 20170926
  17. CYCLOPHOSPHAMIDE [Suspect]
     Active Substance: CYCLOPHOSPHAMIDE
     Dates: start: 20171018, end: 20171019
  18. CYCLOPHOSPHAMIDE [Suspect]
     Active Substance: CYCLOPHOSPHAMIDE
     Dates: start: 20171108, end: 20171109
  19. CYCLOPHOSPHAMIDE [Suspect]
     Active Substance: CYCLOPHOSPHAMIDE
     Dates: start: 20171215, end: 20171216
  20. CYCLOPHOSPHAMIDE [Suspect]
     Active Substance: CYCLOPHOSPHAMIDE
     Dates: start: 20180123
  21. CYCLOPHOSPHAMIDE [Suspect]
     Active Substance: CYCLOPHOSPHAMIDE
     Dates: start: 20180301
  22. VINCRISTINE SULFATE [Suspect]
     Active Substance: VINCRISTINE SULFATE
     Indication: Diffuse large B-cell lymphoma stage III
     Dates: start: 20170904, end: 20170905
  23. VINCRISTINE SULFATE [Suspect]
     Active Substance: VINCRISTINE SULFATE
     Dates: start: 20170925, end: 20170926
  24. VINCRISTINE SULFATE [Suspect]
     Active Substance: VINCRISTINE SULFATE
     Dates: start: 20171018, end: 20171019
  25. VINCRISTINE SULFATE [Suspect]
     Active Substance: VINCRISTINE SULFATE
     Dates: start: 20171108, end: 20171109
  26. VINCRISTINE SULFATE [Suspect]
     Active Substance: VINCRISTINE SULFATE
     Dates: start: 20171215, end: 20171216
  27. VINCRISTINE SULFATE [Suspect]
     Active Substance: VINCRISTINE SULFATE
     Dates: start: 20180123
  28. VINCRISTINE SULFATE [Suspect]
     Active Substance: VINCRISTINE SULFATE
     Dates: start: 20180301
  29. DOXORUBICIN [Suspect]
     Active Substance: DOXORUBICIN
     Indication: Diffuse large B-cell lymphoma stage III
     Dates: start: 20170904, end: 20170905
  30. DOXORUBICIN [Suspect]
     Active Substance: DOXORUBICIN
     Dates: start: 20170925, end: 20170926
  31. DOXORUBICIN [Suspect]
     Active Substance: DOXORUBICIN
     Dates: start: 20171018, end: 20171019
  32. DOXORUBICIN [Suspect]
     Active Substance: DOXORUBICIN
     Dates: start: 20171108, end: 20171109
  33. DOXORUBICIN [Suspect]
     Active Substance: DOXORUBICIN
     Dates: start: 20171215, end: 20171216
  34. DOXORUBICIN [Suspect]
     Active Substance: DOXORUBICIN
     Dates: start: 20180123
  35. DOXORUBICIN [Suspect]
     Active Substance: DOXORUBICIN
     Dates: start: 20180301
  36. MYCOPHENOLATE MOFETIL [Suspect]
     Active Substance: MYCOPHENOLATE MOFETIL
     Indication: Immunosuppressant drug therapy
     Dates: start: 2006, end: 2017
  37. CYCLOSPORINE [Suspect]
     Active Substance: CYCLOSPORINE
     Indication: Immunosuppressant drug therapy
     Dates: start: 2006, end: 2018
  38. FILGRASTIM [Concomitant]
     Active Substance: FILGRASTIM
     Indication: Prophylaxis
     Dates: start: 2017
  39. COTRIMOXAZOLE [Concomitant]
     Active Substance: SULFAMETHOXAZOLE\TRIMETHOPRIM
     Indication: Antifungal prophylaxis
  40. COTRIMOXAZOLE [Concomitant]
     Active Substance: SULFAMETHOXAZOLE\TRIMETHOPRIM
     Route: 042

REACTIONS (10)
  - Atrial fibrillation [Recovered/Resolved]
  - Dysuria [Recovered/Resolved]
  - Asthenia [Recovered/Resolved]
  - Neutropenia [Recovered/Resolved]
  - Anaemia [Recovered/Resolved]
  - Pancytopenia [Recovered/Resolved]
  - Febrile neutropenia [Recovered/Resolved]
  - Staphylococcal infection [Recovered/Resolved]
  - Klebsiella infection [Recovered/Resolved]
  - Oedema peripheral [Recovered/Resolved]

NARRATIVE: CASE EVENT DATE: 20170101
